FAERS Safety Report 8912765 (Version 2)
Quarter: 2013Q1

REPORT INFORMATION
  Report Type: Report from Study
  Country: JP (occurrence: JP)
  Receive Date: 20121116
  Receipt Date: 20130222
  Transmission Date: 20140127
  Serious: Yes (Hospitalization, Other)
  Sender: FDA-Public Use
  Company Number: JP-ABBOTT-12P-087-1007127-00

PATIENT
  Age: 40 Year
  Sex: Male

DRUGS (6)
  1. KALETRA [Suspect]
     Indication: HIV INFECTION
     Route: 048
     Dates: start: 20090227
  2. EMTRICITABINE/TENOFOVIR DISOPROXIL FUMARATE [Concomitant]
     Indication: HIV INFECTION
     Route: 048
     Dates: start: 20090227
  3. FAMOTIDINE [Concomitant]
     Indication: NAUSEA
     Dates: start: 20090313, end: 20110601
  4. BIFIDOBACTERIUM [Concomitant]
     Indication: DIARRHOEA
     Dates: start: 20090501, end: 20110601
  5. LOPERAMIDE HYDROCHLORIDE [Concomitant]
     Indication: DIARRHOEA
  6. LACTOMIN [Concomitant]
     Indication: DIARRHOEA
     Dates: start: 20110527

REACTIONS (12)
  - Enteritis infectious [Recovered/Resolved]
  - Nephrolithiasis [Recovering/Resolving]
  - Pyrexia [Recovered/Resolved]
  - Headache [Recovering/Resolving]
  - Decreased appetite [Recovered/Resolved]
  - Abdominal pain [Recovered/Resolved]
  - Diarrhoea [Recovered/Resolved]
  - Vomiting [Recovered/Resolved]
  - Abdominal pain [Recovered/Resolved]
  - Musculoskeletal stiffness [Recovered/Resolved]
  - Feeling hot [Recovered/Resolved]
  - Lymph node pain [Recovered/Resolved]
